FAERS Safety Report 16452840 (Version 2)
Quarter: 2019Q3

REPORT INFORMATION
  Report Type: Report from Study
  Country: US (occurrence: US)
  Receive Date: 20190619
  Receipt Date: 20190812
  Transmission Date: 20191004
  Serious: No
  Sender: FDA-Public Use
  Company Number: US-SA-2019SA159915

PATIENT
  Age: 47 Year
  Sex: Male

DRUGS (1)
  1. TERIFLUNOMIDE. [Suspect]
     Active Substance: TERIFLUNOMIDE
     Indication: MULTIPLE SCLEROSIS
     Dosage: 14 MG, QD
     Route: 048
     Dates: start: 20190531, end: 20190715

REACTIONS (8)
  - Swelling [Recovered/Resolved]
  - Paraesthesia [Unknown]
  - Joint swelling [Recovered/Resolved]
  - Swelling face [Recovered/Resolved]
  - Peripheral swelling [Recovered/Resolved]
  - Acne [Unknown]
  - Arthralgia [Recovered/Resolved]
  - Headache [Recovered/Resolved]

NARRATIVE: CASE EVENT DATE: 2019
